FAERS Safety Report 6668172-6 (Version None)
Quarter: 2010Q2

REPORT INFORMATION
  Report Type: 
  Country: None (occurrence: None)
  Receive Date: 20100405
  Receipt Date: 20100405
  Transmission Date: 20101027
  Serious: Yes (Life-Threatening)
  Sender: FDA-Public Use
  Company Number: None

PATIENT
  Age: 45 Year
  Sex: Female

DRUGS (5)
  1. ATRIPLA [Suspect]
     Indication: HIV INFECTION
     Dosage: 1 TAB ORAL DAILY
     Route: 048
     Dates: start: 20100319, end: 20100328
  2. METFORMIN HCL [Suspect]
  3. ENALAPRIL [Concomitant]
  4. LEVOTHYROXINE SODIUM [Concomitant]
  5. TRUVADA [Suspect]

REACTIONS (8)
  - EYE OEDEMA [None]
  - FACE OEDEMA [None]
  - LIP OEDEMA [None]
  - PYREXIA [None]
  - RASH ERYTHEMATOUS [None]
  - RASH MACULO-PAPULAR [None]
  - RASH PRURITIC [None]
  - TONGUE OEDEMA [None]
